FAERS Safety Report 18291896 (Version 3)
Quarter: 2020Q4

REPORT INFORMATION
  Report Type: Spontaneous
  Country: JP (occurrence: JP)
  Receive Date: 20200921
  Receipt Date: 20201224
  Transmission Date: 20210113
  Serious: No
  Sender: FDA-Public Use
  Company Number: JP-BRISTOL-MYERS SQUIBB COMPANY-BMS-2020-075987

PATIENT
  Age: 64 Year
  Sex: Female

DRUGS (3)
  1. PEMBROLIZUMAB. [Concomitant]
     Active Substance: PEMBROLIZUMAB
     Indication: MALIGNANT MELANOMA
     Dosage: UNK UNK, Q3WK
     Route: 065
  2. DACARBAZINE. [Concomitant]
     Active Substance: DACARBAZINE
     Indication: MALIGNANT MELANOMA
     Dosage: 100 MG/BODY/DAY, FOR 5 DAYS, Q4WK
     Route: 065
  3. OPDIVO [Suspect]
     Active Substance: NIVOLUMAB
     Indication: MALIGNANT MELANOMA
     Dosage: 2 MILLIGRAM/KILOGRAM, Q3WK
     Route: 041

REACTIONS (2)
  - Eczema [Unknown]
  - Intentional product use issue [Unknown]
